FAERS Safety Report 5702637-6 (Version None)
Quarter: 2008Q2

REPORT INFORMATION
  Report Type: 
  Country: None (occurrence: None)
  Receive Date: 20080411
  Receipt Date: 20080327
  Transmission Date: 20081010
  Serious: Yes (Hospitalization, Other)
  Sender: FDA-Public Use
  Company Number: US-BAYER-200818244NA

PATIENT
  Age: 59 Year
  Sex: Female

DRUGS (3)
  1. AVELOX [Suspect]
     Indication: PNEUMONIA
     Route: 048
     Dates: start: 20080304, end: 20080307
  2. CLARITHROMYCIN [Suspect]
     Indication: PNEUMONIA
     Dosage: TOTAL DAILY DOSE: 1000 MG
     Dates: start: 20080308
  3. COMBIVENT [Concomitant]

REACTIONS (5)
  - BLOOD BLISTER [None]
  - CONTUSION [None]
  - IDIOPATHIC THROMBOCYTOPENIC PURPURA [None]
  - PETECHIAE [None]
  - PLATELET COUNT ABNORMAL [None]
